FAERS Safety Report 8050717-5 (Version None)
Quarter: 2012Q1

REPORT INFORMATION
  Report Type: 
  Country: None (occurrence: None)
  Receive Date: 20120117
  Receipt Date: 20120117
  Transmission Date: 20120608
  Serious: Yes (Hospitalization, Disabling)
  Sender: FDA-Public Use
  Company Number: None

PATIENT
  Age: 62 Year
  Sex: Female
  Weight: 54.431 kg

DRUGS (3)
  1. FOSAMAX [Suspect]
     Indication: OSTEOPOROSIS POSTMENOPAUSAL
     Dates: start: 19951213, end: 20090505
  2. BONIVA [Concomitant]
     Indication: BONE DENSITY DECREASED
     Dates: start: 20090506, end: 20111206
  3. BONIVA [Concomitant]
     Indication: OSTEOPOROSIS POSTMENOPAUSAL
     Dates: start: 20090506, end: 20111206

REACTIONS (5)
  - FALL [None]
  - BONE DENSITY DECREASED [None]
  - MUSCULOSKELETAL PAIN [None]
  - LOSS OF CONTROL OF LEGS [None]
  - FEMUR FRACTURE [None]
